FAERS Safety Report 7270740-8 (Version None)
Quarter: 2011Q1

REPORT INFORMATION
  Report Type: 
  Country: None (occurrence: None)
  Receive Date: 20110202
  Receipt Date: 20110125
  Transmission Date: 20110831
  Serious: Yes (Hospitalization, Other)
  Sender: FDA-Public Use
  Company Number: US-JNJFOC-20100305888

PATIENT
  Sex: Male
  Weight: 26.31 kg

DRUGS (4)
  1. CHILDREN'S MOTRIN [Suspect]
     Indication: PYREXIA
  2. CHILDREN'S MOTRIN [Suspect]
  3. BENADRYL [Suspect]
     Indication: RASH
  4. PREDNISONE [Suspect]
     Indication: RASH

REACTIONS (1)
  - TOXIC EPIDERMAL NECROLYSIS [None]
